FAERS Safety Report 18314811 (Version 1)
Quarter: 2020Q3

REPORT INFORMATION
  Report Type: Spontaneous
  Country: CN (occurrence: CN)
  Receive Date: 20200925
  Receipt Date: 20200925
  Transmission Date: 20201103
  Serious: Yes (Hospitalization)
  Sender: FDA-Public Use
  Company Number: CN-PFIZER INC-2020369711

PATIENT
  Sex: Female

DRUGS (3)
  1. TRANEXAMIC ACID. [Concomitant]
     Active Substance: TRANEXAMIC ACID
     Dosage: 1.0 G
     Route: 041
     Dates: start: 20200731
  2. HEMABATE [Suspect]
     Active Substance: CARBOPROST TROMETHAMINE
     Dosage: UNK
     Route: 030
     Dates: start: 20200731
  3. CALCIUM GLUCONATE. [Concomitant]
     Active Substance: CALCIUM GLUCONATE
     Dosage: UNK
     Route: 041
     Dates: start: 20200731

REACTIONS (2)
  - Headache [Recovered/Resolved]
  - Eclampsia [Recovered/Resolved]

NARRATIVE: CASE EVENT DATE: 20200731
